FAERS Safety Report 21760396 (Version 1)
Quarter: 2022Q4

REPORT INFORMATION
  Report Type: Spontaneous
  Country: US (occurrence: None)
  Receive Date: 20221220
  Receipt Date: 20221220
  Transmission Date: 20230113
  Serious: Yes (Life-Threatening)
  Sender: FDA-Public Use
  Company Number: None

PATIENT
  Age: 71 Year
  Sex: Male
  Weight: 59 kg

DRUGS (1)
  1. ENTYVIO [Suspect]
     Active Substance: VEDOLIZUMAB
     Indication: Crohn^s disease
     Dosage: OTHER FREQUENCY : 300 MG EVERY 8WKS;?
     Route: 042

REACTIONS (5)
  - Infusion related reaction [None]
  - Middle insomnia [None]
  - Lip disorder [None]
  - Feeling abnormal [None]
  - Angioedema [None]

NARRATIVE: CASE EVENT DATE: 20221220
